FAERS Safety Report 5859428-5 (Version None)
Quarter: 2008Q3

REPORT INFORMATION
  Report Type: 
  Country: None (occurrence: None)
  Receive Date: 20080826
  Receipt Date: 20080826
  Transmission Date: 20090109
  Serious: Yes (Other)
  Sender: FDA-Public Use
  Company Number: None

PATIENT
  Sex: Male
  Weight: 80.9 kg

DRUGS (1)
  1. ANCEF [Suspect]
     Dosage: 1 G IV
     Route: 042
     Dates: start: 20080809, end: 20080811

REACTIONS (1)
  - RASH [None]
